FAERS Safety Report 9146554 (Version 3)
Quarter: 2013Q2

REPORT INFORMATION
  Report Type: Spontaneous
  Country: US (occurrence: US)
  Receive Date: 20130307
  Receipt Date: 20130517
  Transmission Date: 20140414
  Serious: Yes (Other)
  Sender: FDA-Public Use
  Company Number: US-US-EMD SERONO, INC.-7051804

PATIENT
  Sex: Female

DRUGS (4)
  1. REBIF [Suspect]
     Indication: PRODUCT USED FOR UNKNOWN INDICATION
     Route: 058
     Dates: start: 20100428
  2. REBIF [Suspect]
     Route: 058
     Dates: start: 2010, end: 20120918
  3. REBIF [Suspect]
     Route: 058
     Dates: start: 20130125
  4. METHOTREXATE [Suspect]
     Indication: PSORIASIS

REACTIONS (3)
  - Liver function test abnormal [Recovered/Resolved]
  - Alopecia [Recovering/Resolving]
  - Vision blurred [Recovering/Resolving]
